FAERS Safety Report 14338953 (Version 1)
Quarter: 2017Q4

REPORT INFORMATION
  Report Type: Spontaneous
  Country: BR (occurrence: BR)
  Receive Date: 20171229
  Receipt Date: 20171229
  Transmission Date: 20180321
  Serious: Yes (Other)
  Sender: FDA-Public Use
  Company Number: BR-ROCHE-1961568

PATIENT
  Age: 65 Year
  Sex: Female

DRUGS (5)
  1. GAZYVA [Concomitant]
     Active Substance: OBINUTUZUMAB
  2. MABTHERA [Suspect]
     Active Substance: RITUXIMAB
     Indication: B-CELL LYMPHOMA
     Dosage: ON D1
     Route: 065
     Dates: start: 2014
  3. MABTHERA [Suspect]
     Active Substance: RITUXIMAB
     Dosage: FOLLOWED BY 375 MG/M2 EVERY 2 MONTHS FOR 24 MONTHS (12 DOSES).
     Route: 065
  4. BENDAMUSTINE [Suspect]
     Active Substance: BENDAMUSTINE
     Dosage: FROM CYCLE 3 TO 6
     Route: 065
  5. BENDAMUSTINE [Suspect]
     Active Substance: BENDAMUSTINE
     Indication: B-CELL LYMPHOMA
     Dosage: ON D1 AND D2
     Route: 065
     Dates: start: 2014

REACTIONS (4)
  - Off label use [Unknown]
  - Rash erythematous [Recovered/Resolved]
  - Pruritus [Recovered/Resolved]
  - Intentional product use issue [Unknown]
